FAERS Safety Report 21739018 (Version 1)
Quarter: 2022Q4

REPORT INFORMATION
  Report Type: Spontaneous
  Country: CN (occurrence: CN)
  Receive Date: 20221216
  Receipt Date: 20221216
  Transmission Date: 20230113
  Serious: Yes (Other)
  Sender: FDA-Public Use
  Company Number: CN-SA-2022SA506039

PATIENT
  Age: 58 Year
  Sex: Female

DRUGS (10)
  1. OXALIPLATIN [Suspect]
     Active Substance: OXALIPLATIN
     Indication: Neuroendocrine carcinoma
     Dosage: 150 MG, DAY 1
     Dates: start: 20210904
  2. OXALIPLATIN [Suspect]
     Active Substance: OXALIPLATIN
     Dosage: 150 MG, DAY 1
     Dates: start: 20211015, end: 202203
  3. GEMCITABINE [Concomitant]
     Active Substance: GEMCITABINE
     Indication: Neuroendocrine carcinoma
     Dosage: 1600 MG, DAY 1
     Dates: start: 20210904
  4. CAMRELIZUMAB [Concomitant]
     Active Substance: CAMRELIZUMAB
     Indication: Neuroendocrine carcinoma
     Dosage: 200 MG, DAY 1
     Dates: start: 20210904
  5. CAMRELIZUMAB [Concomitant]
     Active Substance: CAMRELIZUMAB
     Dosage: 200 MG, DAY 1
     Dates: start: 20211015
  6. APATINIB [Concomitant]
     Active Substance: APATINIB
     Indication: Neuroendocrine carcinoma
     Dosage: 250 MG, QD
     Route: 048
     Dates: start: 20210904, end: 2021
  7. SURUFATINIB [Concomitant]
     Active Substance: SURUFATINIB
     Indication: Neuroendocrine carcinoma
     Dosage: 250 MG, QD, EVERY 21 DAYS
     Route: 048
     Dates: start: 20211015
  8. METFORMIN [Concomitant]
     Active Substance: METFORMIN HYDROCHLORIDE
     Indication: Type 2 diabetes mellitus
     Dosage: UNK,
  9. GLYBURIDE [Concomitant]
     Active Substance: GLYBURIDE
     Indication: Type 2 diabetes mellitus
     Dosage: UNK UNK, TID
  10. PIOGLITAZONE [Concomitant]
     Active Substance: PIOGLITAZONE
     Indication: Type 2 diabetes mellitus
     Dosage: 15 MG, TID

REACTIONS (5)
  - Hyperthyroidism [Unknown]
  - Hypoaesthesia [Unknown]
  - Hypertension [Unknown]
  - Proteinuria [Unknown]
  - Haematuria [Unknown]

NARRATIVE: CASE EVENT DATE: 20210101
